FAERS Safety Report 10398189 (Version 2)
Quarter: 2014Q3

REPORT INFORMATION
  Report Type: Spontaneous
  Country: SE (occurrence: SE)
  Receive Date: 20140821
  Receipt Date: 20140821
  Transmission Date: 20150326
  Serious: Yes (Other)
  Sender: FDA-Public Use
  Company Number: SE-AMGEN-SWESP2014042240

PATIENT
  Age: 62 Year
  Sex: Female
  Weight: 65 kg

DRUGS (3)
  1. KALCIPOS-D [Concomitant]
     Active Substance: CALCIUM CARBONATE\CHOLECALCIFEROL
     Dosage: 500 MG/400 IU, 1X/DAY
     Dates: start: 2005
  2. ACLASTA [Concomitant]
     Active Substance: ZOLEDRONIC ACID
     Dosage: 5 MG ONCE/YEAR
     Route: 042
     Dates: start: 2010
  3. ENBREL [Suspect]
     Active Substance: ETANERCEPT
     Indication: ANKYLOSING SPONDYLITIS
     Dosage: 50 MG, WEEKLY
     Route: 058
     Dates: start: 2007

REACTIONS (3)
  - Injection site pruritus [Recovered/Resolved]
  - Pneumonia [Unknown]
  - Hypersensitivity [Unknown]

NARRATIVE: CASE EVENT DATE: 201312
